FAERS Safety Report 8679131 (Version 2)
Quarter: 2013Q1

REPORT INFORMATION
  Report Type: Spontaneous
  Country: US (occurrence: US)
  Receive Date: 20120724
  Receipt Date: 20130205
  Transmission Date: 20140127
  Serious: No
  Sender: FDA-Public Use
  Company Number: US-009507513-2012SP031305

PATIENT
  Age: 61 Year
  Sex: Male
  Weight: 83.45 kg

DRUGS (10)
  1. VICTRELIS [Suspect]
     Dosage: 2400MG DAILY
     Route: 048
     Dates: start: 20110805, end: 20120219
  2. REBETOL [Suspect]
     Indication: HEPATITIS C
     Dosage: UNK
     Route: 048
     Dates: start: 20110805, end: 20120219
  3. PEGASYS [Suspect]
     Indication: HEPATITIS C
     Dosage: UNK
     Route: 058
     Dates: start: 20110805, end: 20120219
  4. BENICAR HCT [Concomitant]
     Dosage: DOSE: 40/25 MG
  5. BYSTOLIC [Concomitant]
     Dosage: 5 MG, QD
  6. LUNESTA [Concomitant]
     Dosage: 2 MG, QD
  7. NEXIUM [Concomitant]
     Dosage: 40 MG, QD
  8. PROVENTIL [Concomitant]
     Dosage: 90 MICROGRAM, QD
  9. ZOLPIDEM TARTRATE [Concomitant]
     Dosage: 10 MG, QD
  10. VALACYCLOVIR HYDROCHLORIDE [Concomitant]
     Dosage: 500 MG, QD

REACTIONS (4)
  - Tri-iodothyronine increased [Recovered/Resolved]
  - Thyroxine increased [Recovered/Resolved]
  - Glomerular filtration rate decreased [Unknown]
  - Hepatitis C [Unknown]
